FAERS Safety Report 16722251 (Version 1)
Quarter: 2019Q3

REPORT INFORMATION
  Report Type: Spontaneous
  Country: IT (occurrence: IT)
  Receive Date: 20190820
  Receipt Date: 20190820
  Transmission Date: 20191005
  Serious: Yes (Hospitalization, Other)
  Sender: FDA-Public Use
  Company Number: IT-BAUSCH-BL-2019-023235

PATIENT
  Age: 20 Day
  Sex: Male

DRUGS (2)
  1. AMPICILLIN [Suspect]
     Active Substance: AMPICILLIN
     Indication: ANTIBIOTIC THERAPY
     Route: 065
  2. GENTAMICIN. [Suspect]
     Active Substance: GENTAMICIN
     Indication: ANTIBIOTIC THERAPY
     Route: 065

REACTIONS (4)
  - Thrombocytosis [Recovered/Resolved]
  - Clostridium difficile colitis [Recovered/Resolved]
  - Anaemia [Recovered/Resolved]
  - Circulatory collapse [Recovered/Resolved]
